FAERS Safety Report 10355660 (Version 2)
Quarter: 2014Q4

REPORT INFORMATION
  Report Type: Spontaneous
  Country: IT (occurrence: IT)
  Receive Date: 20140731
  Receipt Date: 20141126
  Transmission Date: 20150528
  Serious: Yes (Hospitalization)
  Sender: FDA-Public Use
  Company Number: IT-009507513-1407ITA012544

PATIENT
  Age: 38 Year
  Sex: Male
  Weight: 90 kg

DRUGS (1)
  1. REBETOL [Suspect]
     Active Substance: RIBAVIRIN
     Indication: HEPATITIS C
     Dosage: 1200 MG, QD
     Route: 048
     Dates: start: 20050201, end: 20051201

REACTIONS (1)
  - Autoimmune thyroiditis [Recovered/Resolved with Sequelae]

NARRATIVE: CASE EVENT DATE: 20051201
